FAERS Safety Report 10922354 (Version 1)
Quarter: 2015Q1

REPORT INFORMATION
  Report Type: Spontaneous
  Country: BR (occurrence: BR)
  Receive Date: 20150317
  Receipt Date: 20150317
  Transmission Date: 20150721
  Serious: Yes (Hospitalization, Disabling, Other)
  Sender: FDA-Public Use
  Company Number: BR-B.I. PHARMACEUTICALS,INC./RIDGEFIELD-2015-BI-12901BR

PATIENT
  Age: 88 Year
  Sex: Female
  Weight: 67 kg

DRUGS (12)
  1. DEOCIL [Concomitant]
     Indication: PAIN
     Route: 060
  2. PANTOPRAZOLE [Concomitant]
     Active Substance: PANTOPRAZOLE SODIUM
     Indication: PROPHYLAXIS
     Dosage: 20 MG
     Route: 048
  3. COZAR [Concomitant]
     Indication: HYPERTENSION
     Dosage: 50 MG
     Route: 048
  4. CAVERDILOL [Concomitant]
     Indication: HYPERTENSION
     Dosage: 6.25 MG
     Route: 048
  5. LISPRO HUMALOG [Concomitant]
     Indication: DIABETES MELLITUS
     Dosage: 36 U
     Route: 058
     Dates: start: 2005
  6. LEVEMIR [Concomitant]
     Active Substance: INSULIN DETEMIR
     Indication: DIABETES MELLITUS
     Route: 058
  7. LEXOTAN [Concomitant]
     Active Substance: BROMAZEPAM
     Indication: SLEEP DISORDER
     Route: 065
  8. BESEROL [Concomitant]
     Indication: RHEUMATIC DISORDER
     Route: 048
  9. MUSCULARE [Concomitant]
     Indication: PAIN
     Route: 065
  10. TRADJENTA [Suspect]
     Active Substance: LINAGLIPTIN
     Indication: DIABETES MELLITUS
     Dosage: 5 MG
     Route: 048
     Dates: start: 2012
  11. PROLOPA HBS [Concomitant]
     Indication: PARKINSON^S DISEASE
     Dosage: 250 MG
     Route: 048
  12. ZICOG [Concomitant]
     Indication: TACHYCARDIA
     Route: 065

REACTIONS (11)
  - Haematochezia [Recovered/Resolved]
  - Faeces discoloured [Not Recovered/Not Resolved]
  - Somnolence [Recovered/Resolved]
  - Tachycardia [Recovered/Resolved]
  - Fall [Recovered/Resolved]
  - Hypotension [Recovered/Resolved]
  - Hyperglycaemia [Recovered/Resolved]
  - Fall [Recovered/Resolved]
  - Cerebral ischaemia [Recovered/Resolved]
  - Cerebral ischaemia [Recovered/Resolved]
  - Joint stiffness [Recovered/Resolved]

NARRATIVE: CASE EVENT DATE: 20130926
